FAERS Safety Report 13455928 (Version 1)
Quarter: 2017Q2

REPORT INFORMATION
  Report Type: Spontaneous
  Country: US (occurrence: US)
  Receive Date: 20170418
  Receipt Date: 20170418
  Transmission Date: 20170830
  Serious: Yes (Hospitalization)
  Sender: FDA-Public Use
  Company Number: US-TEVA-760728USA

PATIENT
  Age: 44 Year
  Sex: Female

DRUGS (2)
  1. ATENOLOL. [Suspect]
     Active Substance: ATENOLOL
     Indication: OVERDOSE
     Route: 065
  2. CARBAMAZEPINE. [Suspect]
     Active Substance: CARBAMAZEPINE
     Indication: OVERDOSE
     Route: 065

REACTIONS (4)
  - Pulmonary oedema [Recovered/Resolved]
  - Acute respiratory distress syndrome [Unknown]
  - Coma [Recovered/Resolved]
  - Overdose [Unknown]
